FAERS Safety Report 4683359-X (Version None)
Quarter: 2005Q2

REPORT INFORMATION
  Report Type: 
  Country: None (occurrence: None)
  Receive Date: 20050602
  Receipt Date: 20050204
  Transmission Date: 20051028
  Serious: No
  Sender: FDA-Public Use
  Company Number: 200510184BWH

PATIENT
  Age: 80 Year
  Sex: Male
  Weight: 90.7194 kg

DRUGS (15)
  1. LEVITRA [Suspect]
     Indication: ERECTILE DYSFUNCTION
     Dosage: SEE IMAGE
     Route: 048
     Dates: start: 20050101
  2. LEVITRA [Suspect]
     Indication: ERECTILE DYSFUNCTION
     Dosage: SEE IMAGE
     Route: 048
     Dates: start: 20050101
  3. CARDIZEM [Concomitant]
  4. PRINZIDE [Concomitant]
  5. ADDERALL [Concomitant]
  6. XANAX [Concomitant]
  7. SAW PALMETTO [Concomitant]
  8. BENTYL [Concomitant]
  9. PAXIL [Concomitant]
  10. AMBIEN [Concomitant]
  11. ZOCOR [Concomitant]
  12. GLUCOPHAGE [Concomitant]
  13. CALCIUM GLUCONATE [Concomitant]
  14. OMEGA VITAMIN [Concomitant]
  15. ESTER-C [Concomitant]

REACTIONS (1)
  - ERECTILE DYSFUNCTION [None]
